FAERS Safety Report 24629916 (Version 1)
Quarter: 2024Q4

REPORT INFORMATION
  Report Type: Spontaneous
  Country: PL (occurrence: PL)
  Receive Date: 20241118
  Receipt Date: 20241118
  Transmission Date: 20250114
  Serious: Yes (Life-Threatening, Hospitalization, Other)
  Sender: EPIC PHARM
  Company Number: PL-EPICPHARMA-PL-2024EPCLIT01428

PATIENT
  Age: 46 Year

DRUGS (1)
  1. CARBAMAZEPINE [Suspect]
     Active Substance: CARBAMAZEPINE
     Indication: Product used for unknown indication
     Route: 065

REACTIONS (4)
  - Respiratory distress [Unknown]
  - Cardiac arrest [Recovering/Resolving]
  - Arrhythmia [Recovering/Resolving]
  - Toxicity to various agents [Unknown]
